FAERS Safety Report 22988503 (Version 2)
Quarter: 2024Q3

REPORT INFORMATION
  Report Type: Spontaneous
  Country: MX (occurrence: MX)
  Receive Date: 20230926
  Receipt Date: 20240712
  Transmission Date: 20241017
  Serious: Yes (Death, Life-Threatening)
  Sender: BAUSCH AND LOMB
  Company Number: MX-MLMSERVICE-20230918-4545353-1

PATIENT
  Age: 9 Year
  Sex: Male

DRUGS (8)
  1. HYDROCORTISONE [Suspect]
     Active Substance: HYDROCORTISONE\HYDROCORTISONE ACETATE
     Indication: Acute lymphocytic leukaemia
     Route: 065
  2. LEUCOVORIN [Suspect]
     Active Substance: LEUCOVORIN\LEUCOVORIN CALCIUM
     Indication: Acute lymphocytic leukaemia
     Route: 065
  3. MERCAPTOPURINE [Suspect]
     Active Substance: MERCAPTOPURINE
     Indication: Acute lymphocytic leukaemia
     Route: 065
  4. MITOXANTRONE [Suspect]
     Active Substance: MITOXANTRONE HYDROCHLORIDE
     Indication: Acute lymphocytic leukaemia
     Route: 065
  5. CYTARABINE [Suspect]
     Active Substance: CYTARABINE
     Indication: Acute lymphocytic leukaemia
     Route: 065
  6. METHOTREXATE [Suspect]
     Active Substance: METHOTREXATE
     Indication: Acute lymphocytic leukaemia
     Route: 065
  7. AMIKACIN;CEFTAZIDIME [Concomitant]
     Indication: Pyrexia
     Route: 065
  8. AMIKACIN;CEFTAZIDIME [Concomitant]
     Indication: Abdominal pain

REACTIONS (6)
  - Systemic inflammatory response syndrome [Fatal]
  - Respiratory failure [Fatal]
  - Disseminated mucormycosis [Not Recovered/Not Resolved]
  - Neutropenic colitis [Not Recovered/Not Resolved]
  - Myocardial calcification [Not Recovered/Not Resolved]
  - Intestinal obstruction [Unknown]
